FAERS Safety Report 9918210 (Version 4)
Quarter: 2014Q1

REPORT INFORMATION
  Report Type: Spontaneous
  Country: US (occurrence: US)
  Receive Date: 20140223
  Receipt Date: 20140321
  Transmission Date: 20141002
  Serious: Yes (Other)
  Sender: FDA-Public Use
  Company Number: US-AMGEN-USASP2014012101

PATIENT
  Age: 30 Year
  Sex: Male
  Weight: 126.98 kg

DRUGS (7)
  1. EPOGEN [Suspect]
     Indication: NEPHROGENIC ANAEMIA
     Dosage: 20000 UNIT, QWK
     Route: 065
  2. VENOFER [Concomitant]
     Indication: ANAEMIA
     Dosage: UNK
     Dates: start: 201311
  3. GABAPENTIN [Concomitant]
     Dosage: UNK UNK, BID
     Route: 048
  4. LIPITOR [Concomitant]
     Dosage: UNK UNK, QD
     Route: 048
  5. LABETALOL [Concomitant]
     Dosage: UNK UNK, BID
     Route: 048
  6. OMEPRAZOLE [Concomitant]
     Dosage: UNK UNK, QD
     Route: 048
  7. FOSRENOL [Concomitant]
     Dosage: UNK UNK, TID
     Route: 048

REACTIONS (6)
  - Anaemia [Not Recovered/Not Resolved]
  - Renal failure [Unknown]
  - Blood erythropoietin abnormal [Unknown]
  - Reticulocyte count decreased [Unknown]
  - Drug ineffective [Not Recovered/Not Resolved]
  - Marrow hyperplasia [Unknown]
